FAERS Safety Report 4932583-7 (Version None)
Quarter: 2006Q1

REPORT INFORMATION
  Report Type: 
  Country: None (occurrence: None)
  Receive Date: 20060301
  Receipt Date: 20060217
  Transmission Date: 20060701
  Serious: Yes (Other)
  Sender: FDA-Public Use
  Company Number: HQWYE839716FEB06

PATIENT
  Age: 10 Month
  Sex: Female

DRUGS (1)
  1. AMIODARONE HCL [Suspect]
     Indication: VENTRICULAR FIBRILLATION
     Dosage: 5 MG/KG OVER 1 HOURS INTRAVENOUS
     Route: 042

REACTIONS (2)
  - HYPERGLYCAEMIA [None]
  - VENTRICULAR FIBRILLATION [None]
